FAERS Safety Report 25363013 (Version 1)
Quarter: 2025Q2

REPORT INFORMATION
  Report Type: Spontaneous
  Country: PA (occurrence: PA)
  Receive Date: 20250527
  Receipt Date: 20250527
  Transmission Date: 20250717
  Serious: Yes (Other)
  Sender: PFIZER
  Company Number: PA-PFIZER INC-PV202500062402

PATIENT
  Age: 58 Year
  Sex: Female

DRUGS (2)
  1. INLYTA [Suspect]
     Active Substance: AXITINIB
     Dosage: 5 MG, 2X/DAY (ONE IN THE MORNING AND ANOTHER IN THE AFTERNOON)
  2. PEMBROLIZUMAB [Concomitant]
     Active Substance: PEMBROLIZUMAB

REACTIONS (5)
  - Blister [Unknown]
  - Haemorrhage [Unknown]
  - Hypertension [Unknown]
  - Pruritus [Unknown]
  - Emotional distress [Unknown]
